FAERS Safety Report 9423580 (Version 1)
Quarter: 2013Q3

REPORT INFORMATION
  Report Type: Spontaneous
  Country: JP (occurrence: JP)
  Receive Date: 20130726
  Receipt Date: 20130726
  Transmission Date: 20140515
  Serious: Yes (Other)
  Sender: FDA-Public Use
  Company Number: JP-ASTRAZENECA-2013SE56124

PATIENT
  Sex: 0

DRUGS (1)
  1. BLOPRESS [Suspect]
     Route: 048
     Dates: start: 20130401

REACTIONS (4)
  - Oedema [Recovered/Resolved]
  - Urinary retention [Recovered/Resolved]
  - Haematuria [Not Recovered/Not Resolved]
  - Gingival bleeding [Not Recovered/Not Resolved]
